FAERS Safety Report 8533703-8 (Version None)
Quarter: 2012Q3

REPORT INFORMATION
  Report Type: 
  Country: None (occurrence: None)
  Receive Date: 20120724
  Receipt Date: 20120717
  Transmission Date: 20120928
  Serious: Yes (Other)
  Sender: FDA-Public Use
  Company Number: MX-UCBSA-062027

PATIENT
  Age: 34 Year
  Sex: Female
  Weight: 55 kg

DRUGS (4)
  1. TOPAMAX [Concomitant]
     Indication: PARTIAL SEIZURES
     Dates: start: 20090210
  2. ATEMPERATOR [Concomitant]
     Indication: PARTIAL SEIZURES
     Route: 048
     Dates: start: 20090210
  3. VIMPAT [Suspect]
     Indication: PARTIAL SEIZURES
     Route: 048
     Dates: start: 20120213, end: 20120226
  4. VIMPAT [Suspect]
     Route: 048
     Dates: start: 20120227, end: 20120612

REACTIONS (4)
  - TACHYCARDIA [None]
  - WEIGHT DECREASED [None]
  - ANXIETY [None]
  - PSYCHOTIC DISORDER [None]
